FAERS Safety Report 5918295-1 (Version None)
Quarter: 2008Q4

REPORT INFORMATION
  Report Type: 
  Country: None (occurrence: None)
  Receive Date: 20081010
  Receipt Date: 20080923
  Transmission Date: 20090506
  Serious: Yes (Hospitalization)
  Sender: FDA-Public Use
  Company Number: B0540059A

PATIENT
  Age: 21 Month
  Sex: Female

DRUGS (1)
  1. AMOX TRIHYD+POT. CLAVULAN. (FORMULATION UNKNOWN) (AMOX. TRIHYD+POT.CLA [Suspect]
     Indication: UPPER RESPIRATORY TRACT INFECTION
     Dosage: ORAL
     Route: 048

REACTIONS (2)
  - LINEAR IGA DISEASE [None]
  - STAPHYLOCOCCAL SEPSIS [None]
